FAERS Safety Report 8827884 (Version 1)
Quarter: 2012Q4

REPORT INFORMATION
  Report Type: 
  Country: IN (occurrence: IN)
  Receive Date: 20121005
  Receipt Date: 20121005
  Transmission Date: 20130627
  Serious: Yes (Other)
  Sender: FDA-Public Use
  Company Number: IN-ALLERGAN-1213580US

PATIENT
  Age: 63 Year
  Sex: Male

DRUGS (11)
  1. CYCLOSPORINE [Suspect]
     Indication: DRY EYE
     Dosage: 0.5%; four times daily
     Route: 047
  2. BACILLE CALMETTE GUERIN [Suspect]
     Indication: BLADDER CARCINOMA
     Dosage: 1 installation per week
     Route: 043
  3. MOXIFLOXACIN [Concomitant]
     Dosage: 8 times daily
     Route: 047
  4. TIMOLOL [Concomitant]
     Dosage: twice daily
     Route: 047
  5. ATROPINE SULFATE [Concomitant]
     Dosage: 3 times daily
     Route: 047
  6. LUBRICANT GEL [Concomitant]
     Dosage: UNK UNK, q6hr
  7. PREDNISOLONE [Concomitant]
     Route: 048
  8. RIFAMPICIN [Concomitant]
  9. PYRAZINAMIDE [Concomitant]
  10. ETAMBUTOL [Concomitant]
  11. ISONIAZIDE [Concomitant]

REACTIONS (2)
  - Corneal disorder [Unknown]
  - Corneal perforation [Unknown]
